FAERS Safety Report 6817012-0 (Version None)
Quarter: 2010Q3

REPORT INFORMATION
  Report Type: 
  Country: None (occurrence: None)
  Receive Date: 20100706
  Receipt Date: 20100625
  Transmission Date: 20110219
  Serious: Yes (Hospitalization)
  Sender: FDA-Public Use
  Company Number: JP-JNJFOC-20091008648

PATIENT
  Sex: Female
  Weight: 37 kg

DRUGS (12)
  1. REMICADE [Suspect]
     Indication: RHEUMATOID ARTHRITIS
     Dosage: 1ST INFUSION
     Route: 042
  2. REMICADE [Suspect]
     Dosage: 2ND INFUSION
     Route: 042
  3. RHEUMATREX [Concomitant]
     Indication: RHEUMATOID ARTHRITIS
     Dosage: REPORTED AS 6 AND 8 MG
     Route: 048
  4. AZULFIDINE [Concomitant]
     Indication: RHEUMATOID ARTHRITIS
     Route: 048
  5. PREDONINE [Concomitant]
     Indication: RHEUMATOID ARTHRITIS
     Route: 048
  6. PREDONINE [Concomitant]
     Route: 048
  7. PREDONINE [Concomitant]
     Route: 048
  8. PREDONINE [Concomitant]
     Route: 048
  9. NABOAL [Concomitant]
     Indication: RHEUMATOID ARTHRITIS
     Route: 048
  10. PROTECADIN [Concomitant]
     Indication: GASTRITIS
     Route: 048
  11. SALIGREN [Concomitant]
     Indication: SJOGREN'S SYNDROME
     Route: 048
  12. BENET [Concomitant]
     Indication: OSTEOPOROSIS
     Route: 048

REACTIONS (6)
  - ALTERED STATE OF CONSCIOUSNESS [None]
  - CONVULSION [None]
  - INAPPROPRIATE ANTIDIURETIC HORMONE SECRETION [None]
  - NERVOUS SYSTEM DISORDER [None]
  - PNEUMONIA [None]
  - RHEUMATOID ARTHRITIS [None]
